FAERS Safety Report 8888763 (Version 3)
Quarter: 2013Q1

REPORT INFORMATION
  Report Type: Spontaneous
  Country: US (occurrence: US)
  Receive Date: 20121106
  Receipt Date: 20130122
  Transmission Date: 20140127
  Serious: Yes (Death, Hospitalization, Other)
  Sender: FDA-Public Use
  Company Number: US-CELGENEUS-163-21880-12103080

PATIENT
  Age: 75 None
  Sex: Male

DRUGS (1)
  1. REVLIMID [Suspect]
     Indication: PLASMA CELL MYELOMA
     Dosage: 10 MILLIGRAM
     Route: 048
     Dates: start: 20120104

REACTIONS (7)
  - Plasma cell myeloma [Fatal]
  - Blood calcium increased [Unknown]
  - Dehydration [Unknown]
  - Constipation [Unknown]
  - Anaemia [Unknown]
  - Asthenia [Unknown]
  - Blood count abnormal [Unknown]
